FAERS Safety Report 4851935-7 (Version None)
Quarter: 2005Q4

REPORT INFORMATION
  Report Type: 
  Country: None (occurrence: None)
  Receive Date: 20051209
  Receipt Date: 20051124
  Transmission Date: 20060501
  Serious: Yes (Death, Other)
  Sender: FDA-Public Use
  Company Number: PHO 2005-046

PATIENT
  Age: 74 Year
  Sex: Male

DRUGS (1)
  1. PHOTOFRIN [Suspect]
     Indication: OESOPHAGEAL CARCINOMA
     Dosage: 2 MG/KG    I.V.
     Route: 042
     Dates: start: 20021201, end: 20031101

REACTIONS (4)
  - MALIGNANT NEOPLASM PROGRESSION [None]
  - OESOPHAGEAL CARCINOMA [None]
  - THERAPEUTIC RESPONSE DECREASED [None]
  - TRACHEO-OESOPHAGEAL FISTULA [None]
